FAERS Safety Report 7654039-3 (Version None)
Quarter: 2011Q3

REPORT INFORMATION
  Report Type: 
  Country: None (occurrence: None)
  Receive Date: 20110803
  Receipt Date: 20110722
  Transmission Date: 20111222
  Serious: Yes (Hospitalization, Disabling, Other)
  Sender: FDA-Public Use
  Company Number: PHHY2011US65515

PATIENT
  Sex: Female

DRUGS (4)
  1. PREVACID [Concomitant]
     Dosage: 15 MG
     Route: 048
  2. PEN-VEE K [Concomitant]
     Indication: SPLENECTOMY
     Dosage: 250 MG, BID
     Route: 049
  3. EXJADE [Suspect]
     Dosage: 1500 MG, QD
  4. LISINOPRIL [Concomitant]
     Indication: CARDIAC FAILURE CONGESTIVE
     Dosage: 15 MG, BID
     Route: 048

REACTIONS (4)
  - COSTOVERTEBRAL ANGLE TENDERNESS [None]
  - NEPHROLITHIASIS [None]
  - FLANK PAIN [None]
  - CHROMATURIA [None]
